FAERS Safety Report 9658868 (Version 2)
Quarter: 2013Q4

REPORT INFORMATION
  Report Type: Report from Study
  Country: BR (occurrence: BR)
  Receive Date: 20131030
  Receipt Date: 20131113
  Transmission Date: 20140711
  Serious: Yes (Other)
  Sender: FDA-Public Use
  Company Number: BR-ROCHE-1291982

PATIENT
  Age: 53 Year
  Sex: Female
  Weight: 61.4 kg

DRUGS (13)
  1. VISMODEGIB [Suspect]
     Indication: BASAL CELL CARCINOMA
     Dosage: DATE OF LAST DOSE PRIOR TO SAE ONSET: 16/OCT/2013
     Route: 048
     Dates: start: 20130924
  2. OXYCODONE [Concomitant]
     Indication: PAIN
     Route: 065
     Dates: start: 201304
  3. METOCLOPRAMIDE [Concomitant]
     Indication: NAUSEA
     Route: 065
     Dates: start: 20130927
  4. METOCLOPRAMIDE [Concomitant]
     Route: 065
     Dates: start: 20131007, end: 20131007
  5. ACETAMINOPHEN [Concomitant]
  6. MORPHINE [Concomitant]
     Indication: PAIN
     Route: 065
     Dates: start: 201306
  7. DIPYRONE [Concomitant]
     Indication: PAIN
     Route: 065
     Dates: start: 201304
  8. BISACODYL [Concomitant]
     Indication: CONSTIPATION
     Route: 065
     Dates: start: 201306
  9. PLASIL [Concomitant]
     Indication: NAUSEA
     Route: 065
     Dates: start: 20130927
  10. PLASIL [Concomitant]
     Indication: VOMITING
  11. ONDANSETRON [Concomitant]
     Indication: NAUSEA
     Route: 065
     Dates: start: 20131007, end: 20131007
  12. CEFTRIAXONE SODIUM [Concomitant]
     Indication: PNEUMONIA
     Route: 065
     Dates: start: 20131101
  13. CLARITHROMYCIN [Concomitant]
     Indication: PNEUMONIA
     Route: 065
     Dates: start: 20131101

REACTIONS (1)
  - Hypercalcaemia [Recovered/Resolved]
